FAERS Safety Report 24035718 (Version 1)
Quarter: 2024Q3

REPORT INFORMATION
  Report Type: Spontaneous
  Country: US (occurrence: US)
  Receive Date: 20240701
  Receipt Date: 20240701
  Transmission Date: 20241017
  Serious: No
  Sender: TARO
  Company Number: US-TARO PHARMACEUTICALS USA INC.-2023TAR01309

PATIENT

DRUGS (1)
  1. IVERMECTIN [Suspect]
     Active Substance: IVERMECTIN
     Indication: Lice infestation
     Dosage: UNK,WHOLE COMPLETE BOTTLE AS MUCH AS I CAN GET OUT OF IT,ONE TIME USE
     Route: 061
     Dates: start: 20231207

REACTIONS (2)
  - Pruritus [Not Recovered/Not Resolved]
  - Rash [Recovered/Resolved]
